FAERS Safety Report 6299624-9 (Version None)
Quarter: 2009Q3

REPORT INFORMATION
  Report Type: 
  Country: None (occurrence: None)
  Receive Date: 20090806
  Receipt Date: 20090727
  Transmission Date: 20100115
  Serious: Yes (Hospitalization)
  Sender: FDA-Public Use
  Company Number: US-NOVOPROD-287527

PATIENT
  Age: 75 Year
  Sex: Male
  Weight: 84.807 kg

DRUGS (14)
  1. NOVOLOG MIX 70/30 [Suspect]
     Indication: INSULIN-REQUIRING TYPE 2 DIABETES MELLITUS
     Dosage: 6 IU, BID
     Route: 058
     Dates: start: 20090430
  2. PLAVIX [Concomitant]
     Dosage: 75 MG, QD
  3. LOSARTAN POTASSIUM [Concomitant]
     Dosage: 25 MG, QD
  4. SIMVASTATIN [Concomitant]
     Dosage: 80 MG, QD (AT BEDTIME)
  5. ASPIRIN [Concomitant]
     Dosage: 325 MG, QD
  6. NAPROXEN [Concomitant]
     Dosage: 375 MG, PRN
  7. FLOMAX [Concomitant]
     Dosage: .4 MG, QD (AT BEDTIME)
  8. IMDUR [Concomitant]
     Dosage: 60 MG, QD
  9. COREG [Concomitant]
     Dosage: 6.25 MG, BID
  10. CARBIDOPA-LEVODOPA [Concomitant]
     Dosage: 10/100 (1-2 TABS AT BEDTIME), PRN
  11. PRILOSEC [Concomitant]
     Dosage: 20 MG, QD
  12. HYDROCODONE [Concomitant]
     Dosage: UNK, PRN
  13. LORATADINE [Concomitant]
     Dosage: 10 MG, QD
  14. METHOCARBAMOL [Concomitant]
     Dosage: 750 MG, PRN (EVERY 8 HOURS)

REACTIONS (1)
  - ANGINA UNSTABLE [None]
